FAERS Safety Report 14055809 (Version 3)
Quarter: 2019Q1

REPORT INFORMATION
  Report Type: Spontaneous
  Country: PL (occurrence: PL)
  Receive Date: 20171006
  Receipt Date: 20190319
  Transmission Date: 20190417
  Serious: Yes (Death, Life-Threatening, Hospitalization, Other)
  Sender: FDA-Public Use
  Company Number: PL-AUROBINDO-AUR-APL-2017-41258

PATIENT

DRUGS (5)
  1. CLINDAMYCIN. [Suspect]
     Active Substance: CLINDAMYCIN
     Indication: CLOSTRIDIAL INFECTION
     Dosage: 600 MILLIGRAM, 3 TIMES A DAY
     Route: 042
     Dates: start: 20150417
  2. AMOXICILLIN+CLAVULANIC ACID [Suspect]
     Active Substance: AMOXICILLIN\CLAVULANIC ACID
     Indication: CLOSTRIDIAL INFECTION
     Dosage: 1.2 GRAM, 3 TIMES A DAY
     Route: 042
     Dates: start: 20150417
  3. CLINDAMYCIN. [Suspect]
     Active Substance: CLINDAMYCIN
     Dosage: 600 MILLIGRAM, ONCE A DAY
     Route: 042
     Dates: start: 20150417
  4. AMOXICILLIN+CLAVULANIC ACID [Suspect]
     Active Substance: AMOXICILLIN\CLAVULANIC ACID
     Dosage: 1.2 GRAM, ONCE A DAY
     Route: 042
     Dates: start: 20150417
  5. HYDROGEN PEROXIDE. [Concomitant]
     Active Substance: HYDROGEN PEROXIDE
     Indication: PRODUCT USED FOR UNKNOWN INDICATION
     Dosage: UNK, RINSE
     Route: 065
     Dates: start: 201504, end: 201504

REACTIONS (3)
  - Drug ineffective [Fatal]
  - Drug resistance [Unknown]
  - Clostridial infection [Fatal]

NARRATIVE: CASE EVENT DATE: 20150417
